FAERS Safety Report 16540878 (Version 4)
Quarter: 2019Q4

REPORT INFORMATION
  Report Type: Spontaneous
  Country: US (occurrence: US)
  Receive Date: 20190708
  Receipt Date: 20191002
  Transmission Date: 20200122
  Serious: Yes (Life-Threatening, Other)
  Sender: FDA-Public Use
  Company Number: US-SA-2019SA182349

PATIENT
  Age: 39 Year
  Sex: Female
  Weight: 97 kg

DRUGS (19)
  1. DUPIXENT [Suspect]
     Active Substance: DUPILUMAB
     Indication: NASAL POLYPS
  2. ASTELIN [Concomitant]
     Active Substance: AZELASTINE HYDROCHLORIDE
     Indication: NASAL CONGESTION
  3. FUROSEMIDE. [Concomitant]
     Active Substance: FUROSEMIDE
     Dosage: 20 MG
     Route: 048
  4. DUPIXENT [Suspect]
     Active Substance: DUPILUMAB
     Indication: ASPIRIN-EXACERBATED RESPIRATORY DISEASE
     Dosage: 600 MG, 1X
     Route: 058
     Dates: start: 20190702, end: 20190702
  5. BLEPHAMIDE [PREDNISOLONE ACETATE;SULFACETAMIDE SODIUM] [Concomitant]
     Dosage: 10-0.2%
     Route: 047
  6. BREO ELLIPTA [Concomitant]
     Active Substance: FLUTICASONE FUROATE\VILANTEROL TRIFENATATE
     Dosage: 200-250MCG, INHALE NIGHTLY
     Route: 055
  7. PRILOSEC [Concomitant]
     Active Substance: OMEPRAZOLE MAGNESIUM
     Dosage: UNK UNK, PRN
     Route: 048
  8. AZELASTINE. [Concomitant]
     Active Substance: AZELASTINE HYDROCHLORIDE
     Dosage: 137 MG, QD
     Route: 045
  9. BENADRYL [Concomitant]
     Active Substance: DIPHENHYDRAMINE HYDROCHLORIDE
     Indication: PRURITUS
     Dosage: 1 DF, QID, AS NEEDED
     Route: 048
     Dates: start: 20190702, end: 20190712
  10. ALLEGRA-D 24 HOUR [Concomitant]
     Active Substance: FEXOFENADINE HYDROCHLORIDE\PSEUDOEPHEDRINE HYDROCHLORIDE
     Dosage: 180-240 MG, TAKE NIGHTLY
     Route: 048
  11. PROAIR [FLUTICASONE PROPIONATE] [Concomitant]
     Active Substance: FLUTICASONE PROPIONATE
     Dosage: 90 UG, EVERY 4 HRS AS NEEDED
     Route: 055
  12. ZOFRAN [Concomitant]
     Active Substance: ONDANSETRON HYDROCHLORIDE
     Indication: NAUSEA
     Dosage: 1 DF, QID, AS NEEDED
     Route: 048
     Dates: start: 20180223
  13. ZYFLO CR [Concomitant]
     Active Substance: ZILEUTON
     Dosage: 1 DF, BID
     Dates: start: 20161017
  14. CRYSELLE [Concomitant]
     Active Substance: ETHINYL ESTRADIOL\NORGESTREL
     Dosage: 0.3-30 MG-UG PER TABLET NIGHTLY
     Route: 048
     Dates: start: 20170105
  15. QNASL [Concomitant]
     Active Substance: BECLOMETHASONE DIPROPIONATE
     Dosage: 2 PUFFS DAILY
     Dates: start: 20180302
  16. ASTELIN [Concomitant]
     Active Substance: AZELASTINE HYDROCHLORIDE
     Indication: ASTHMA
     Dosage: 137 UG, BID AS NEEDED, 2 PUFFS IN EACH NARE
     Route: 045
  17. VITAMINS NOS [Concomitant]
     Active Substance: VITAMINS
  18. ALBUTEROL [SALBUTAMOL SULFATE] [Concomitant]
     Active Substance: ALBUTEROL SULFATE
     Indication: ASTHMA
     Dosage: UNK UNK, BIW
  19. PEPCID [Concomitant]
     Active Substance: FAMOTIDINE
     Dosage: 1 DF, QD
     Route: 048
     Dates: start: 20190702

REACTIONS (7)
  - Anaphylactic reaction [Recovered/Resolved]
  - Unevaluable event [Unknown]
  - Panic attack [Unknown]
  - Throat tightness [Recovered/Resolved]
  - Dyspnoea [Recovered/Resolved]
  - Swelling [Recovered/Resolved]
  - Headache [Unknown]

NARRATIVE: CASE EVENT DATE: 2019
